FAERS Safety Report 5705476-5 (Version None)
Quarter: 2008Q2

REPORT INFORMATION
  Report Type: 
  Country: None (occurrence: None)
  Receive Date: 20080411
  Receipt Date: 20080328
  Transmission Date: 20081010
  Serious: Yes (Death)
  Sender: FDA-Public Use
  Company Number: M7001-02901-SPO-US

PATIENT
  Age: 67 Year
  Sex: Male

DRUGS (1)
  1. TARGRETIN [Suspect]
     Indication: MYCOSIS FUNGOIDES
     Dosage: 450 MG, ORAL
     Route: 048

REACTIONS (7)
  - CONFUSIONAL STATE [None]
  - GENERAL PHYSICAL HEALTH DETERIORATION [None]
  - LYMPHOMA [None]
  - METASTASES TO MENINGES [None]
  - MYCOSIS FUNGOIDES [None]
  - PNEUMONIA [None]
  - SEPSIS [None]
